FAERS Safety Report 5875931-6 (Version None)
Quarter: 2008Q3

REPORT INFORMATION
  Report Type: 
  Country: None (occurrence: None)
  Receive Date: 20080910
  Receipt Date: 20080902
  Transmission Date: 20090109
  Serious: Yes (Other)
  Sender: FDA-Public Use
  Company Number: KR-JNJFOC-20080901401

PATIENT
  Age: 48 Year
  Sex: Female

DRUGS (1)
  1. RISPERDAL [Suspect]
     Indication: SCHIZOPHRENIA
     Route: 048

REACTIONS (4)
  - ABNORMAL BEHAVIOUR [None]
  - AVOIDANT PERSONALITY DISORDER [None]
  - EXTRAPYRAMIDAL DISORDER [None]
  - SUICIDAL IDEATION [None]
